FAERS Safety Report 26008452 (Version 2)
Quarter: 2025Q4

REPORT INFORMATION
  Report Type: Spontaneous
  Country: US (occurrence: US)
  Receive Date: 20251106
  Receipt Date: 20251130
  Transmission Date: 20260118
  Serious: No
  Sender: SANOFI AVENTIS
  Company Number: US-SA-2025SA328003

PATIENT
  Age: 67 Year
  Sex: Male

DRUGS (1)
  1. ALTUVIIIO [Suspect]
     Active Substance: EFANESOCTOCOG ALFA
     Indication: Factor VIII deficiency
     Dosage: (4050-4950) SLOW IV PUSH ONCE A WEEK. INFUSE 2700 UNITS (2430-2970) FOR MINOR AND MODERATE BLEEDS QW
     Route: 042
     Dates: start: 202508

REACTIONS (3)
  - Haemorrhage [Unknown]
  - Eye haemorrhage [Unknown]
  - Haemorrhage [Unknown]

NARRATIVE: CASE EVENT DATE: 20251016
